FAERS Safety Report 15426078 (Version 1)
Quarter: 2018Q3

REPORT INFORMATION
  Report Type: Spontaneous
  Country: CR (occurrence: CR)
  Receive Date: 20180925
  Receipt Date: 20180925
  Transmission Date: 20181010
  Serious: Yes (Other)
  Sender: FDA-Public Use
  Company Number: CR-PFIZER INC-2018384506

PATIENT
  Sex: Female

DRUGS (2)
  1. ALTRULINE [Suspect]
     Active Substance: SERTRALINE HYDROCHLORIDE
     Indication: DEPRESSION
     Dosage: UNKNOWN DOSE AND FREQUENCY
  2. TAFIL AP [Suspect]
     Active Substance: ALPRAZOLAM
     Dosage: 10 MG, SINGLE DOSE

REACTIONS (2)
  - Inappropriate schedule of drug administration [Unknown]
  - Suicide attempt [Unknown]
